FAERS Safety Report 16111057 (Version 6)
Quarter: 2021Q4

REPORT INFORMATION
  Report Type: Report from Study
  Country: US (occurrence: None)
  Receive Date: 20190325
  Receipt Date: 20211117
  Transmission Date: 20220303
  Serious: Yes (Death, Hospitalization, Other)
  Sender: FDA-Public Use
  Company Number: US-ROCHE-2112137

PATIENT
  Age: 69 Year
  Sex: Male
  Weight: 90.2 kg

DRUGS (15)
  1. ATEZOLIZUMAB [Suspect]
     Active Substance: ATEZOLIZUMAB
     Indication: Colorectal cancer metastatic
     Dosage: MOST RECENT DOSE RECEIVED ON 22/MAR/2018
     Route: 041
     Dates: start: 20180111, end: 20180111
  2. BEVACIZUMAB [Suspect]
     Active Substance: BEVACIZUMAB
     Indication: Colorectal cancer metastatic
     Dosage: MOST RECENT DOSE RECEIVED ON 22/MAR/2018
     Route: 042
     Dates: start: 20180111, end: 20180111
  3. CAPECITABINE [Suspect]
     Active Substance: CAPECITABINE
     Indication: Colorectal cancer metastatic
     Dosage: MOST RECENT DOSE RECEIVED ON 22/MAR/2018?DOSE: 850 OR 1000 MG/M^2
     Route: 048
     Dates: start: 20180111
  4. APIXABAN [Concomitant]
     Active Substance: APIXABAN
  5. ASPIRIN [Concomitant]
     Active Substance: ASPIRIN
     Route: 048
  6. CHOLECALCIFEROL [Concomitant]
     Active Substance: CHOLECALCIFEROL
     Route: 048
  7. COENZYME Q10 [Concomitant]
     Active Substance: DIETARY SUPPLEMENT\UBIDECARENONE
     Dosage: 200 MG/GRAM POWDER
     Route: 048
  8. LOMOTIL [Concomitant]
     Active Substance: ATROPINE SULFATE\DIPHENOXYLATE HYDROCHLORIDE
     Indication: Diarrhoea
     Dosage: 2.5-0.025 MG
     Route: 048
  9. LISINOPRIL [Concomitant]
     Active Substance: LISINOPRIL
     Route: 048
  10. ONDANSETRON [Concomitant]
     Active Substance: ONDANSETRON
     Indication: Nausea
     Route: 048
  11. OXYCODONE [Concomitant]
     Active Substance: OXYCODONE
     Route: 048
  12. POTASSIUM CHLORIDE [Concomitant]
     Active Substance: POTASSIUM CHLORIDE
     Route: 048
  13. COMPAZINE [Concomitant]
     Active Substance: PROCHLORPERAZINE MALEATE
     Indication: Nausea
     Dosage: TAKE 1 TABLET BY MOUTH EVERY 6 HOURS AS NEEDED.
  14. SILDENAFIL [Concomitant]
     Active Substance: SILDENAFIL
     Dosage: APPLY TOPICALLY 2 TIMES DAILY
  15. CALAN (UNITED STATES) [Concomitant]
     Route: 048

REACTIONS (3)
  - Haematuria [Recovered/Resolved]
  - Hepatic failure [Fatal]
  - Hypertension [Not Recovered/Not Resolved]

NARRATIVE: CASE EVENT DATE: 20180410
